FAERS Safety Report 4562347-8 (Version None)
Quarter: 2005Q1

REPORT INFORMATION
  Report Type: 
  Country: None (occurrence: None)
  Receive Date: 20050127
  Receipt Date: 20041027
  Transmission Date: 20050727
  Serious: Yes (Other)
  Sender: FDA-Public Use
  Company Number: US-BRISTOL-MYERS SQUIBB COMPANY-12757811

PATIENT
  Sex: Female

DRUGS (3)
  1. PARAPLATIN AQ [Suspect]
     Indication: OVARIAN CANCER
     Dosage: NDC # 0015323311, LOT# 4580098 AND EXP. DATE 28-FEB-2006 FOR 3 OF THE 4 PATIENTS
     Route: 042
  2. BENADRYL [Concomitant]
     Indication: PREMEDICATION
     Route: 042
  3. DECADRON [Concomitant]
     Indication: PREMEDICATION
     Route: 042

REACTIONS (1)
  - HYPERSENSITIVITY [None]
